FAERS Safety Report 13513660 (Version 3)
Quarter: 2017Q3

REPORT INFORMATION
  Report Type: Spontaneous
  Country: US (occurrence: US)
  Receive Date: 20170504
  Receipt Date: 20170721
  Transmission Date: 20171127
  Serious: Yes (Hospitalization, Other)
  Sender: FDA-Public Use
  Company Number: US-009507513-1705USA002192

PATIENT
  Sex: Female
  Weight: 72.56 kg

DRUGS (1)
  1. NUVARING [Suspect]
     Active Substance: ETHINYL ESTRADIOL\ETONOGESTREL
     Indication: CONTRACEPTION
     Dosage: 1 DF, WEAR FOR 3 WEEKS, REMOVE FOR 1
     Route: 067
     Dates: start: 201404, end: 20140504

REACTIONS (33)
  - Hyperlipidaemia [Unknown]
  - Blood triglycerides increased [Unknown]
  - Migraine [Unknown]
  - Vomiting [Not Recovered/Not Resolved]
  - Abdominal pain [Not Recovered/Not Resolved]
  - Hepatic steatosis [Unknown]
  - Rhinorrhoea [Unknown]
  - Gastrooesophageal reflux disease [Not Recovered/Not Resolved]
  - Dyspnoea [Unknown]
  - Oropharyngeal pain [Unknown]
  - Diarrhoea [Unknown]
  - Fatigue [Recovering/Resolving]
  - Paranasal sinus hypersecretion [Unknown]
  - Nausea [Not Recovered/Not Resolved]
  - Pruritus [Unknown]
  - Stress urinary incontinence [Unknown]
  - Eustachian tube dysfunction [Unknown]
  - Constipation [Unknown]
  - Sinus congestion [Unknown]
  - Chest pain [Unknown]
  - Pharyngitis streptococcal [Unknown]
  - Depression [Not Recovered/Not Resolved]
  - Decreased appetite [Unknown]
  - Dyspnoea exertional [Unknown]
  - Hypokalaemia [Recovered/Resolved]
  - Pulmonary embolism [Recovering/Resolving]
  - Chest pain [Unknown]
  - Thrombosis [Unknown]
  - Asthma [Unknown]
  - Papilloma viral infection [Unknown]
  - Myopia [Unknown]
  - Uterine malposition [Unknown]
  - Defaecation urgency [Unknown]

NARRATIVE: CASE EVENT DATE: 2014
